FAERS Safety Report 9625624 (Version 2)
Quarter: 2013Q4

REPORT INFORMATION
  Report Type: Spontaneous
  Country: DE (occurrence: DE)
  Receive Date: 20131016
  Receipt Date: 20131028
  Transmission Date: 20140711
  Serious: Yes (Congenital Anomaly)
  Sender: FDA-Public Use
  Company Number: DE-RANBAXY-2013RR-74063

PATIENT
  Age: 1 Day
  Sex: Male

DRUGS (8)
  1. ENALAPRIL [Suspect]
     Indication: HYPERTENSION
     Dosage: 10 MG, BID, DURING GESTATIONAL WEEKS 0-15
     Route: 064
     Dates: start: 20080605, end: 20080918
  2. VOTUM [Suspect]
     Indication: HYPERTENSION
     Dosage: 20 MG, BID, DURING GESTATIONAL WEEKS 0-15
     Route: 064
     Dates: start: 20080605, end: 20080918
  3. CARMEN [Suspect]
     Indication: HYPERTENSION
     Dosage: 10 MG, BID, DURING GESTATIONAL WEEKS 0-15
     Route: 064
     Dates: start: 20080605, end: 20080918
  4. KALETRA WEICHKAPSELN [Suspect]
     Indication: HIV INFECTION
     Dosage: 1000 MG, BID, DURING GESTATIONAL WEEKS 0-38
     Route: 064
  5. TRUVADA [Suspect]
     Indication: HIV INFECTION
     Dosage: 245 MG, QD, DURING GESTATIONAL WEEKS 0-38
     Route: 064
  6. BELOC-ZOK MITE [Concomitant]
     Indication: HYPERTENSION
     Dosage: 47.5 MG, BID, DURING GESTATIONAL WEEKS 0-38
     Route: 064
     Dates: start: 20080605, end: 20090226
  7. NIFEDIPIN-WOLFF 40 RETARD [Concomitant]
     Indication: HYPERTENSION
     Dosage: 40 MG, QD, DURING 15.2-38 GESTATIONAL WEEKS
     Route: 064
     Dates: start: 20080920, end: 20090226
  8. METHYLDOPA [Concomitant]
     Indication: HYPERTENSION
     Dosage: 250 MG, TID, DURING GESTATIONAL WEEKS 15.2-38
     Route: 064
     Dates: start: 20080920, end: 20090226

REACTIONS (3)
  - Kidney duplex [Not Recovered/Not Resolved]
  - Congenital hearing disorder [Not Recovered/Not Resolved]
  - Supernumerary nipple [Not Recovered/Not Resolved]
